FAERS Safety Report 7785333-3 (Version None)
Quarter: 2011Q3

REPORT INFORMATION
  Report Type: 
  Country: None (occurrence: None)
  Receive Date: 20110929
  Receipt Date: 20110923
  Transmission Date: 20111222
  Serious: No
  Sender: FDA-Public Use
  Company Number: US-PFIZER INC-2010144180

PATIENT
  Sex: Female
  Weight: 63.039 kg

DRUGS (4)
  1. LAMICTAL [Concomitant]
     Indication: CONVULSION
     Dosage: UNK
     Dates: start: 19820101
  2. TOVIAZ [Suspect]
     Indication: HYPERTONIC BLADDER
     Dosage: 4 MG, DAILY
     Route: 048
     Dates: start: 20100701
  3. TOVIAZ [Suspect]
     Dosage: 4 MG, DAILY
     Route: 048
     Dates: start: 20110201
  4. VALSARTAN [Concomitant]
     Indication: HYPERTENSION
     Dosage: UNK

REACTIONS (3)
  - POLLAKIURIA [None]
  - DRUG INEFFECTIVE [None]
  - URINARY INCONTINENCE [None]
